FAERS Safety Report 4362816-X (Version None)
Quarter: 2004Q2

REPORT INFORMATION
  Report Type: 
  Country: None (occurrence: None)
  Receive Date: 20040524
  Receipt Date: 20040422
  Transmission Date: 20050107
  Serious: Yes (Hospitalization)
  Sender: FDA-Public Use
  Company Number: US-BRISTOL-MYERS SQUIBB COMPANY-12568762

PATIENT
  Age: 40 Year
  Sex: Female

DRUGS (4)
  1. ABILIFY [Suspect]
     Indication: SCHIZOAFFECTIVE DISORDER
     Dosage: TITRATED UP TO 30 MG (NO DATES SPECIFIED), THEN DISCONTINUED.
     Dates: start: 20030601
  2. EFFEXOR XR [Concomitant]
  3. SONATA [Concomitant]
     Dosage: QHS
  4. KLONOPIN [Concomitant]

REACTIONS (6)
  - CARDIOVASCULAR DISORDER [None]
  - COMPARTMENT SYNDROME [None]
  - HEPATIC FAILURE [None]
  - NEUROLEPTIC MALIGNANT SYNDROME [None]
  - RENAL FAILURE [None]
  - RHABDOMYOLYSIS [None]
